FAERS Safety Report 4930420-8 (Version None)
Quarter: 2006Q1

REPORT INFORMATION
  Report Type: 
  Country: None (occurrence: None)
  Receive Date: 20060302
  Receipt Date: 20060227
  Transmission Date: 20060701
  Serious: Yes (Hospitalization)
  Sender: FDA-Public Use
  Company Number: FR-AVENTIS-200610812FR

PATIENT
  Age: 83 Year
  Sex: Male

DRUGS (2)
  1. KETEK [Suspect]
     Route: 048
     Dates: start: 20060206, end: 20060210
  2. PREVISCAN [Concomitant]

REACTIONS (3)
  - CYTOLYTIC HEPATITIS [None]
  - HEPATOCELLULAR DAMAGE [None]
  - INTERNATIONAL NORMALISED RATIO INCREASED [None]
